FAERS Safety Report 11449929 (Version 1)
Quarter: 2015Q3

REPORT INFORMATION
  Report Type: Spontaneous
  Country: US (occurrence: US)
  Receive Date: 20150903
  Receipt Date: 20150903
  Transmission Date: 20151125
  Serious: No
  Sender: FDA-Public Use
  Company Number: US-ROCHE-1057719

PATIENT
  Age: 59 Year
  Sex: Female
  Weight: 119.86 kg

DRUGS (3)
  1. TELAPREVIR [Suspect]
     Active Substance: TELAPREVIR
     Indication: HEPATITIS C
     Route: 048
     Dates: start: 20120303
  2. PEGASYS [Suspect]
     Active Substance: PEGINTERFERON ALFA-2A
     Indication: HEPATITIS C
     Route: 058
     Dates: start: 20120303
  3. RIBAVIRIN. [Suspect]
     Active Substance: RIBAVIRIN
     Indication: HEPATITIS C
     Dosage: COPEGUS
     Route: 048
     Dates: start: 20120303

REACTIONS (13)
  - White blood cell count decreased [Unknown]
  - Nausea [Unknown]
  - Feeling hot [Unknown]
  - Erythema [Recovered/Resolved]
  - Dysgeusia [Unknown]
  - Injection site erythema [Recovered/Resolved]
  - Eating disorder [Unknown]
  - Skin irritation [Unknown]
  - Anaemia [Unknown]
  - Rash [Unknown]
  - Skin exfoliation [Unknown]
  - Vomiting [Unknown]
  - Asthenia [Unknown]

NARRATIVE: CASE EVENT DATE: 20120303
